FAERS Safety Report 8064216-8 (Version None)
Quarter: 2012Q1

REPORT INFORMATION
  Report Type: 
  Country: None (occurrence: None)
  Receive Date: 20120123
  Receipt Date: 20120111
  Transmission Date: 20120608
  Serious: Yes (Other)
  Sender: FDA-Public Use
  Company Number: PHHY2012BR002988

PATIENT
  Age: 50 Year
  Sex: Male

DRUGS (2)
  1. FORASEQ [Suspect]
     Indication: BRONCHITIS
     Dosage: 1 DF, QD
  2. LORATADINE [Suspect]

REACTIONS (2)
  - MUSCLE SPASMS [None]
  - PRODUCT QUALITY ISSUE [None]
